FAERS Safety Report 12580874 (Version 1)
Quarter: 2016Q3

REPORT INFORMATION
  Report Type: Not Available
  Country: None (occurrence: US)
  Receive Date: 20160721
  Receipt Date: 20160721
  Transmission Date: 20161109
  Serious: No
  Sender: FDA-Public Use
  Company Number: US-AKORN-34268

PATIENT
  Sex: Female

DRUGS (1)
  1. LEVALBUTEROL HYDROCHLORIDE. [Suspect]
     Active Substance: LEVALBUTEROL HYDROCHLORIDE

REACTIONS (3)
  - Swollen tongue [Unknown]
  - Lip swelling [Unknown]
  - Lip haemorrhage [Unknown]
